FAERS Safety Report 6450088-1 (Version None)
Quarter: 2009Q4

REPORT INFORMATION
  Report Type: 
  Country: None (occurrence: None)
  Receive Date: 20091120
  Receipt Date: 20091120
  Transmission Date: 20100525
  Serious: No
  Sender: FDA-Public Use
  Company Number: None

PATIENT
  Age: 18 Year
  Sex: Female
  Weight: 63.5036 kg

DRUGS (1)
  1. IMPLANON [Suspect]
     Indication: CONTRACEPTION
     Dates: start: 20090718, end: 20091028

REACTIONS (4)
  - FALLOPIAN TUBE DISORDER [None]
  - INJURY [None]
  - MENORRHAGIA [None]
  - PELVIC INFLAMMATORY DISEASE [None]
